FAERS Safety Report 12496171 (Version 2)
Quarter: 2016Q2

REPORT INFORMATION
  Report Type: Spontaneous
  Country: US (occurrence: US)
  Receive Date: 20160624
  Receipt Date: 20160630
  Transmission Date: 20160815
  Serious: Yes (Other)
  Sender: FDA-Public Use
  Company Number: US-PFIZER INC-2016313837

PATIENT
  Age: 35 Year
  Sex: Male
  Weight: 90.72 kg

DRUGS (2)
  1. METAMFETAMINE [Suspect]
     Active Substance: METHAMPHETAMINE
     Dosage: UNK
  2. LYRICA [Suspect]
     Active Substance: PREGABALIN
     Indication: PAIN
     Dosage: UNK
     Dates: start: 201601, end: 20160604

REACTIONS (14)
  - Brain injury [Unknown]
  - Paranoia [Recovering/Resolving]
  - Agitation [Recovering/Resolving]
  - Thinking abnormal [Unknown]
  - Weight decreased [Unknown]
  - Depressed level of consciousness [Unknown]
  - Social avoidant behaviour [Unknown]
  - Psychotic disorder [Recovering/Resolving]
  - Activities of daily living impaired [Recovering/Resolving]
  - Substance use [Unknown]
  - Partner stress [Recovering/Resolving]
  - Delusion [Recovering/Resolving]
  - Crime [Unknown]
  - Disorientation [Unknown]

NARRATIVE: CASE EVENT DATE: 201601
